FAERS Safety Report 13272505 (Version 1)
Quarter: 2017Q1

REPORT INFORMATION
  Report Type: Spontaneous
  Country: US (occurrence: US)
  Receive Date: 20170225
  Receipt Date: 20170225
  Transmission Date: 20170428
  Serious: Yes (Disabling, Other)
  Sender: FDA-Public Use
  Company Number: None

PATIENT
  Age: 70 Year
  Sex: Female
  Weight: 52.65 kg

DRUGS (11)
  1. ASPIRIN. [Concomitant]
     Active Substance: ASPIRIN
  2. PROBIOTIC [Concomitant]
     Active Substance: PROBIOTICS NOS
  3. STOOL SOFTENER (DOCUSATE) [Concomitant]
     Active Substance: DOCUSATE
  4. LOSARTAN. [Concomitant]
     Active Substance: LOSARTAN
  5. ATORVASTATIN [Concomitant]
     Active Substance: ATORVASTATIN
  6. MULTI VITAMIN [Concomitant]
     Active Substance: VITAMINS
  7. LACTAID [Concomitant]
     Active Substance: LACTASE
  8. ARESTIN [Suspect]
     Active Substance: MINOCYCLINE HYDROCHLORIDE
     Indication: GINGIVAL DISORDER
     Dosage: INJECTION INTO GUMS?
     Dates: start: 20160323, end: 20161012
  9. LORAZEPAM. [Concomitant]
     Active Substance: LORAZEPAM
  10. FIBERCON [Concomitant]
     Active Substance: CALCIUM POLYCARBOPHIL
  11. CALCIUM [Concomitant]
     Active Substance: CALCIUM

REACTIONS (2)
  - Weight decreased [None]
  - Dysgeusia [None]

NARRATIVE: CASE EVENT DATE: 20160630
